FAERS Safety Report 4899741-1 (Version None)
Quarter: 2006Q1

REPORT INFORMATION
  Report Type: 
  Country: None (occurrence: None)
  Receive Date: 20060118
  Receipt Date: 20050809
  Transmission Date: 20060701
  Serious: No
  Sender: FDA-Public Use
  Company Number: 2005001572

PATIENT
  Age: 41 Year
  Sex: Male
  Weight: 76.6579 kg

DRUGS (3)
  1. TARCEVA [Suspect]
     Indication: NON-SMALL CELL LUNG CANCER
     Dosage: 150 MG (QD), ORAL
     Route: 048
  2. CELEXA [Concomitant]
  3. DURAGESIC-100 [Concomitant]

REACTIONS (9)
  - ABDOMINAL PAIN [None]
  - ANXIETY [None]
  - APHASIA [None]
  - CONFUSIONAL STATE [None]
  - DIARRHOEA [None]
  - DISORIENTATION [None]
  - DROOLING [None]
  - RASH [None]
  - VOMITING [None]
